FAERS Safety Report 12693908 (Version 1)
Quarter: 2016Q3

REPORT INFORMATION
  Report Type: Spontaneous
  Country: US (occurrence: US)
  Receive Date: 20160829
  Receipt Date: 20160829
  Transmission Date: 20161109
  Serious: No
  Sender: FDA-Public Use
  Company Number: US-009507513-1608USA012607

PATIENT
  Age: 69 Year
  Sex: Female

DRUGS (2)
  1. BELSOMRA [Suspect]
     Active Substance: SUVOREXANT
     Indication: MIDDLE INSOMNIA
     Dosage: 20 MG, QD
     Route: 048
     Dates: start: 201503, end: 201607
  2. BELSOMRA [Suspect]
     Active Substance: SUVOREXANT
     Indication: INITIAL INSOMNIA

REACTIONS (2)
  - Photopsia [Recovered/Resolved]
  - Restless legs syndrome [Recovered/Resolved]
